FAERS Safety Report 20031274 (Version 1)
Quarter: 2021Q4

REPORT INFORMATION
  Report Type: Spontaneous
  Country: IN (occurrence: IN)
  Receive Date: 20211103
  Receipt Date: 20211103
  Transmission Date: 20220303
  Serious: Yes (Hospitalization)
  Sender: FDA-Public Use
  Company Number: IN-MYLANLABS-2021M1079578

PATIENT
  Age: 5 Month
  Sex: Male
  Weight: 6.5 kg

DRUGS (5)
  1. ACETAMINOPHEN [Suspect]
     Active Substance: ACETAMINOPHEN
     Indication: Pyrexia
     Dosage: UNK
     Route: 065
  2. AZITHROMYCIN [Suspect]
     Active Substance: AZITHROMYCIN
     Indication: COVID-19
     Dosage: 10 MILLIGRAM/KILOGRAM, QD
     Route: 048
  3. IMMUNOGLOBULIN                     /07494701/ [Concomitant]
     Indication: Kawasaki^s disease
     Dosage: RECEIVED 2G/KG OVER 24 HOUR
     Route: 042
  4. ASPIRIN                            /00002701/ [Concomitant]
     Indication: Kawasaki^s disease
     Dosage: 30 MILLIGRAM/KILOGRAM
     Route: 048
  5. ASPIRIN                            /00002701/ [Concomitant]
     Dosage: 3 MILLIGRAM/KILOGRAM, QD
     Route: 048

REACTIONS (2)
  - Drug ineffective [Unknown]
  - Off label use [Unknown]
